FAERS Safety Report 7823035-5 (Version None)
Quarter: 2011Q4

REPORT INFORMATION
  Report Type: 
  Country: None (occurrence: None)
  Receive Date: 20111018
  Receipt Date: 20101005
  Transmission Date: 20120403
  Serious: No
  Sender: FDA-Public Use
  Company Number: US-ASTRAZENECA-2010SE47215

PATIENT
  Age: 74 Year
  Sex: Male

DRUGS (2)
  1. ALBUTEROL SULFATE [Concomitant]
     Dosage: TID
     Route: 055
  2. SYMBICORT [Suspect]
     Dosage: 160/4.5 2 PUFFS BID
     Route: 055
     Dates: start: 20090101

REACTIONS (1)
  - CHRONIC OBSTRUCTIVE PULMONARY DISEASE [None]
